FAERS Safety Report 4862822-2 (Version None)
Quarter: 2005Q4

REPORT INFORMATION
  Report Type: 
  Country: None (occurrence: None)
  Receive Date: 20051221
  Receipt Date: 20051209
  Transmission Date: 20060501
  Serious: Yes (Death)
  Sender: FDA-Public Use
  Company Number: DE-JNJFOC-20051203381

PATIENT
  Sex: Male
  Weight: 85 kg

DRUGS (5)
  1. REOPRO [Suspect]
     Route: 042
  2. REOPRO [Suspect]
     Indication: DRUG USE FOR UNKNOWN INDICATION
     Route: 042
  3. BIVALIRUDIN [Suspect]
     Route: 042
  4. BIVALIRUDIN [Suspect]
     Indication: DRUG USE FOR UNKNOWN INDICATION
     Route: 042
  5. HEPARIN [Concomitant]

REACTIONS (6)
  - CARDIAC ARREST [None]
  - PULMONARY EMBOLISM [None]
  - SUDDEN CARDIAC DEATH [None]
  - SYNCOPE [None]
  - THROMBOCYTOPENIA [None]
  - THROMBOSIS IN DEVICE [None]
